FAERS Safety Report 7427692-7 (Version None)
Quarter: 2011Q1

REPORT INFORMATION
  Report Type: 
  Country: None (occurrence: None)
  Receive Date: 20110302
  Receipt Date: 20110105
  Transmission Date: 20110831
  Serious: No
  Sender: FDA-Public Use
  Company Number: 024973

PATIENT
  Sex: Male
  Weight: 95.3 kg

DRUGS (2)
  1. APRESOLINE [Concomitant]
  2. CIMZIA [Suspect]
     Indication: CROHN'S DISEASE
     Dosage: SUBCUTANEOUS
     Route: 058
     Dates: start: 20100201

REACTIONS (2)
  - LARYNGITIS [None]
  - NASOPHARYNGITIS [None]
